FAERS Safety Report 7441804-0 (Version None)
Quarter: 2011Q2

REPORT INFORMATION
  Report Type: 
  Country: None (occurrence: None)
  Receive Date: 20110428
  Receipt Date: 20110413
  Transmission Date: 20111010
  Serious: Yes (Other)
  Sender: FDA-Public Use
  Company Number: JM-JNJFOC-20110311288

PATIENT
  Age: 13 Year
  Sex: Male

DRUGS (7)
  1. CONCERTA [Suspect]
     Route: 048
  2. CONCERTA [Suspect]
     Route: 048
  3. CONCERTA [Suspect]
     Route: 048
  4. CONCERTA [Suspect]
     Indication: PSYCHOMOTOR HYPERACTIVITY
     Route: 048
  5. CONCERTA [Suspect]
     Indication: DISTURBANCE IN ATTENTION
     Route: 048
  6. CONCERTA [Suspect]
     Route: 048
  7. INSULIN [Concomitant]
     Indication: DIABETES MELLITUS
     Route: 065

REACTIONS (6)
  - BLOOD GLUCOSE DECREASED [None]
  - NAUSEA [None]
  - VOMITING [None]
  - INAPPROPRIATE SCHEDULE OF DRUG ADMINISTRATION [None]
  - ABDOMINAL PAIN [None]
  - DECREASED APPETITE [None]
